FAERS Safety Report 7089035-0 (Version None)
Quarter: 2010Q4

REPORT INFORMATION
  Report Type: 
  Country: None (occurrence: None)
  Receive Date: 20101108
  Receipt Date: 20101101
  Transmission Date: 20110411
  Serious: Yes (Death)
  Sender: FDA-Public Use
  Company Number: A0890974A

PATIENT
  Sex: Male

DRUGS (1)
  1. COREG [Suspect]
     Dosage: 12.5MG UNKNOWN
     Route: 065
     Dates: start: 20071001

REACTIONS (3)
  - CARDIAC DISORDER [None]
  - CARDIAC FAILURE [None]
  - DYSPNOEA [None]
